FAERS Safety Report 10890608 (Version 6)
Quarter: 2015Q3

REPORT INFORMATION
  Report Type: Report from Study
  Country: CA (occurrence: CA)
  Receive Date: 20150305
  Receipt Date: 20150817
  Transmission Date: 20151125
  Serious: Yes (Hospitalization, Other)
  Sender: FDA-Public Use
  Company Number: CA-ABBVIE-15K-028-1354282-00

PATIENT
  Age: 53 Year
  Sex: Female
  Weight: 50.85 kg

DRUGS (4)
  1. NEXIUM [Concomitant]
     Active Substance: ESOMEPRAZOLE MAGNESIUM
     Indication: GASTROOESOPHAGEAL REFLUX DISEASE
     Route: 048
  2. HUMIRA [Suspect]
     Active Substance: ADALIMUMAB
     Indication: CROHN^S DISEASE
     Route: 058
     Dates: start: 20101128, end: 20150225
  3. ESOMEPRAZOLE [Concomitant]
     Active Substance: ESOMEPRAZOLE
     Indication: GASTROOESOPHAGEAL REFLUX DISEASE
  4. HUMIRA [Suspect]
     Active Substance: ADALIMUMAB
     Route: 058
     Dates: start: 2015, end: 20150326

REACTIONS (10)
  - Crohn^s disease [Recovering/Resolving]
  - Gastrointestinal infection [Unknown]
  - Post procedural complication [Not Recovered/Not Resolved]
  - Gastrointestinal anastomotic leak [Recovering/Resolving]
  - Short-bowel syndrome [Not Recovered/Not Resolved]
  - Intestinal stenosis [Recovering/Resolving]
  - Gastrointestinal stoma complication [Recovering/Resolving]
  - Intestinal fibrosis [Recovering/Resolving]
  - Dehydration [Recovering/Resolving]
  - Intestinal perforation [Recovered/Resolved]

NARRATIVE: CASE EVENT DATE: 2015
